FAERS Safety Report 7626627-1 (Version None)
Quarter: 2011Q3

REPORT INFORMATION
  Report Type: 
  Country: None (occurrence: None)
  Receive Date: 20110721
  Receipt Date: 20110712
  Transmission Date: 20111222
  Serious: Yes (Death, Hospitalization)
  Sender: FDA-Public Use
  Company Number: JP-ROCHE-790035

PATIENT
  Sex: Female

DRUGS (2)
  1. AVASTIN [Suspect]
     Indication: LUNG ADENOCARCINOMA
     Dosage: FORM: INJECTION
     Route: 041
     Dates: start: 20110408, end: 20110428
  2. DOCETAXEL [Concomitant]
     Dosage: FORM: INJECTION, DOSAGE: UNCERTAIN, DRUG NAME: DOCETAXEL HYDRATE
     Route: 041

REACTIONS (2)
  - DISEASE PROGRESSION [None]
  - SMALL INTESTINAL PERFORATION [None]
